FAERS Safety Report 20921200 (Version 1)
Quarter: 2022Q2

REPORT INFORMATION
  Report Type: Spontaneous
  Country: US (occurrence: None)
  Receive Date: 20220606
  Receipt Date: 20220606
  Transmission Date: 20220721
  Serious: Yes (Other)
  Sender: FDA-Public Use
  Company Number: None

PATIENT
  Age: 67 Year
  Sex: Female
  Weight: 67.13 kg

DRUGS (1)
  1. PROLIA [Suspect]
     Active Substance: DENOSUMAB
     Indication: Osteoporosis
     Dosage: OTHER QUANTITY : 1 INJECTION AT HSP;?OTHER FREQUENCY : 1 EVERY 6 MTHS;?OTHER ROUTE : INJECTION ;?
     Route: 050
     Dates: start: 202202, end: 202202

REACTIONS (5)
  - Medial tibial stress syndrome [None]
  - Arthralgia [None]
  - Insomnia [None]
  - Discomfort [None]
  - Gait disturbance [None]

NARRATIVE: CASE EVENT DATE: 20220418
